FAERS Safety Report 7006430-6 (Version None)
Quarter: 2010Q3

REPORT INFORMATION
  Report Type: 
  Country: None (occurrence: None)
  Receive Date: 20100910
  Receipt Date: 20100903
  Transmission Date: 20110219
  Serious: Yes (Death, Life-Threatening, Hospitalization)
  Sender: FDA-Public Use
  Company Number: CLOF-1000840

PATIENT
  Age: 61 Year
  Sex: Female

DRUGS (23)
  1. EVOLTRA (CLOFARABINE) SOLUTION FOR INFUSION, UNK [Suspect]
     Indication: ACUTE MYELOID LEUKAEMIA
     Dosage: 40 MG, QDX5, INTRAVENOUS, 40 MG, QDX5, INTRAVENOUS
     Route: 042
     Dates: start: 20091124, end: 20091128
  2. EVOLTRA (CLOFARABINE) SOLUTION FOR INFUSION, UNK [Suspect]
     Indication: ACUTE MYELOID LEUKAEMIA
     Dosage: 40 MG, QDX5, INTRAVENOUS, 40 MG, QDX5, INTRAVENOUS
     Route: 042
     Dates: start: 20100105, end: 20100109
  3. DAUNORUBICIN HCL [Suspect]
     Indication: ACUTE MYELOID LEUKAEMIA
     Dosage: 100 MG, INTRAVENOUS, 100 MG, INTRAVENOUS
     Route: 042
     Dates: start: 20091124, end: 20091128
  4. DAUNORUBICIN HCL [Suspect]
     Indication: ACUTE MYELOID LEUKAEMIA
     Dosage: 100 MG, INTRAVENOUS, 100 MG, INTRAVENOUS
     Route: 042
     Dates: start: 20100105, end: 20100109
  5. PIPERACILLIN SODIUM AND TAZOBACTAM SODIUM [Concomitant]
  6. LINEZOLID [Concomitant]
  7. VANCOMYCIN [Concomitant]
  8. METRONIDAZOLE [Concomitant]
  9. DALTEPARIN SODIUM [Concomitant]
  10. MICONAZOLE [Concomitant]
  11. ACYCLOVIR [Concomitant]
  12. CODEINE PHOSPHATE AND ACETAMINOPHEN [Concomitant]
  13. METOCLOPRAMIDE [Concomitant]
  14. ALLOPURINOL [Concomitant]
  15. ONDANSETRON [Concomitant]
  16. DIFLUCAN [Concomitant]
  17. CHLORHEXIDINE (CHLORHEXIDINE) [Concomitant]
  18. POTASSIUM CHLORIDE [Concomitant]
  19. SLOW-K [Concomitant]
  20. ACETAMINOPHEN [Concomitant]
  21. OXYCODONE HCL [Concomitant]
  22. LEVOPROME [Concomitant]
  23. ZOPICLONE (ZOPICLONE) [Concomitant]

REACTIONS (15)
  - ACTIVATED PARTIAL THROMBOPLASTIN TIME PROLONGED [None]
  - ACUTE MYELOID LEUKAEMIA [None]
  - BLOOD CREATINE DECREASED [None]
  - BLOOD PH INCREASED [None]
  - BLOOD POTASSIUM DECREASED [None]
  - BLOOD UREA DECREASED [None]
  - DECREASED APPETITE [None]
  - DIARRHOEA [None]
  - DISSEMINATED INTRAVASCULAR COAGULATION [None]
  - HAEMORRHAGE INTRACRANIAL [None]
  - MALIGNANT NEOPLASM PROGRESSION [None]
  - PANCYTOPENIA [None]
  - PCO2 DECREASED [None]
  - SEPSIS [None]
  - VOMITING [None]
